FAERS Safety Report 6214237-2 (Version None)
Quarter: 2009Q2

REPORT INFORMATION
  Report Type: 
  Country: None (occurrence: None)
  Receive Date: 20090604
  Receipt Date: 20090527
  Transmission Date: 20091009
  Serious: Yes (Hospitalization)
  Sender: FDA-Public Use
  Company Number: PHEH2009US05345

PATIENT
  Sex: Female

DRUGS (9)
  1. RECLAST [Suspect]
     Indication: OSTEOPOROSIS
     Dosage: 5 MG, ONCE/SINGLE
     Dates: start: 20090521, end: 20090521
  2. PLAVIX [Concomitant]
  3. OSCAL [Concomitant]
  4. VITAMIN D [Concomitant]
  5. WELCHOL [Concomitant]
     Dosage: UNK
  6. CELEBREX [Concomitant]
  7. CENTRUM [Concomitant]
  8. VITAMIN B COMPLEX CAP [Concomitant]
  9. FOLIC ACID [Concomitant]

REACTIONS (4)
  - APHASIA [None]
  - CEREBRAL INFARCTION [None]
  - MUSCULAR WEAKNESS [None]
  - TRANSIENT ISCHAEMIC ATTACK [None]
